FAERS Safety Report 4304608-3 (Version None)
Quarter: 2004Q1

REPORT INFORMATION
  Report Type: 
  Country: None (occurrence: None)
  Receive Date: 20040224
  Receipt Date: 20040212
  Transmission Date: 20041129
  Serious: Yes (Death, Life-Threatening)
  Sender: FDA-Public Use
  Company Number: A044-002-004850

PATIENT
  Age: 85 Year
  Sex: Female

DRUGS (4)
  1. ARICEPT [Suspect]
     Dosage: 5 MG, 1 IN 1 D, ORAL
     Route: 048
     Dates: start: 20030808, end: 20030822
  2. CITALOPRAM(CITALOPRAM HYDROBROMIDE) [Concomitant]
  3. PERINDOPRIL(PERINDOPRIL) [Concomitant]
  4. METHYCLOTHIAZIDE, TRIAMTERENE(ISOBAR) [Concomitant]

REACTIONS (6)
  - ARRHYTHMIA [None]
  - BRADYCARDIA [None]
  - CARDIAC ARREST [None]
  - CEREBRAL ISCHAEMIA [None]
  - GENERAL PHYSICAL HEALTH DETERIORATION [None]
  - MALAISE [None]
